FAERS Safety Report 9948376 (Version 2)
Quarter: 2014Q1

REPORT INFORMATION
  Report Type: Spontaneous
  Country: US (occurrence: US)
  Receive Date: 20140303
  Receipt Date: 20140310
  Transmission Date: 20141002
  Serious: No
  Sender: FDA-Public Use
  Company Number: US-GILEAD-2014-0094848

PATIENT
  Age: 58 Year
  Sex: Male

DRUGS (4)
  1. SOFOSBUVIR [Suspect]
     Indication: HEPATITIS C
     Dosage: 400 MG, QD
     Route: 048
     Dates: start: 20131219
  2. RIBAVIRIN [Concomitant]
     Dosage: 3 DF, BID
     Dates: start: 20131219
  3. RIBAVIRIN [Concomitant]
     Dosage: 3 DF, BID
     Dates: start: 20120727
  4. RIBAVIRIN [Concomitant]
     Dosage: 1200 MG, QD
     Dates: start: 20120824, end: 20130110

REACTIONS (1)
  - Gout [Recovered/Resolved]
